FAERS Safety Report 10871207 (Version 2)
Quarter: 2015Q1

REPORT INFORMATION
  Report Type: Report from Study
  Country: US (occurrence: US)
  Receive Date: 20150226
  Receipt Date: 20150305
  Transmission Date: 20150721
  Serious: Yes (Hospitalization)
  Sender: FDA-Public Use
  Company Number: US-009507513-1502USA008817

PATIENT
  Age: 60 Year
  Sex: Female
  Weight: 54 kg

DRUGS (3)
  1. LOSMAPIMOD [Suspect]
     Active Substance: LOSMAPIMOD
     Indication: ACUTE CORONARY SYNDROME
     Dosage: UNK, BID
     Route: 048
     Dates: start: 20150122
  2. INTEGRILIN [Suspect]
     Active Substance: EPTIFIBATIDE
     Indication: ACUTE MYOCARDIAL INFARCTION
     Dosage: 2 MICROGRAM PER KILOGRAM PER MIN, CO, QD
     Route: 042
     Dates: start: 20150122, end: 20150123
  3. HEPARIN SODIUM. [Suspect]
     Active Substance: HEPARIN SODIUM
     Indication: ACUTE MYOCARDIAL INFARCTION
     Dosage: 1300 UNIT, 1 DAY, CO
     Route: 042
     Dates: start: 20150121, end: 20150122

REACTIONS (1)
  - Anaemia [Recovered/Resolved]

NARRATIVE: CASE EVENT DATE: 20150123
